APPROVED DRUG PRODUCT: LURASIDONE HYDROCHLORIDE
Active Ingredient: LURASIDONE HYDROCHLORIDE
Strength: 20MG
Dosage Form/Route: TABLET;ORAL
Application: A208047 | Product #001 | TE Code: AB
Applicant: DR REDDYS LABORATORIES LTD
Approved: Aug 24, 2021 | RLD: No | RS: No | Type: RX